FAERS Safety Report 6518226-X (Version None)
Quarter: 2009Q4

REPORT INFORMATION
  Report Type: 
  Country: None (occurrence: None)
  Receive Date: 20091218
  Receipt Date: 20091218
  Transmission Date: 20100525
  Serious: No
  Sender: FDA-Public Use
  Company Number: None

PATIENT
  Age: 51 Year
  Sex: Female
  Weight: 63.5036 kg

DRUGS (6)
  1. COLD REMEDY GEL SWABS [Suspect]
     Indication: NASOPHARYNGITIS
     Dosage: QID FOR 2 WEEKS
     Dates: start: 20090301, end: 20090401
  2. COLD REMEDY GEL SWABS [Suspect]
     Indication: VIRAL INFECTION
     Dosage: QID FOR 2 WEEKS
     Dates: start: 20090301, end: 20090401
  3. COLD REMEDY ORAL MIST [Suspect]
     Indication: NASOPHARYNGITIS
     Dosage: QID FOR 2 WEEKS
     Dates: start: 20090301, end: 20090401
  4. COLD REMEDY ORAL MIST [Suspect]
     Indication: VIRAL INFECTION
     Dosage: QID FOR 2 WEEKS
     Dates: start: 20090301, end: 20090401
  5. COLD REMEDY ORAL MIST [Suspect]
     Indication: NASOPHARYNGITIS
     Dosage: QID FOR 2  WEEKS
     Dates: start: 20090301, end: 20090401
  6. COLD REMEDY ORAL MIST [Suspect]
     Indication: VIRAL INFECTION
     Dosage: QID FOR 2  WEEKS
     Dates: start: 20090301, end: 20090401

REACTIONS (5)
  - AGEUSIA [None]
  - ANOSMIA [None]
  - EPISTAXIS [None]
  - NASAL DRYNESS [None]
  - TONGUE BLISTERING [None]
